FAERS Safety Report 9657152 (Version 2)
Quarter: 2014Q2

REPORT INFORMATION
  Report Type: Spontaneous
  Country: US (occurrence: US)
  Receive Date: 20131030
  Receipt Date: 20140612
  Transmission Date: 20141212
  Serious: No
  Sender: FDA-Public Use
  Company Number: US-009507513-1310USA014223

PATIENT
  Sex: Female
  Weight: 113.38 kg

DRUGS (2)
  1. CLARITIN REDITABS 12HR [Suspect]
     Indication: SNEEZING
     Dosage: UNK, UNKNOWN
     Route: 048
  2. CLARITIN REDITABS 12HR [Suspect]
     Indication: SEASONAL ALLERGY

REACTIONS (1)
  - Drug effect decreased [Unknown]
